FAERS Safety Report 12559390 (Version 1)
Quarter: 2016Q3

REPORT INFORMATION
  Report Type: Spontaneous
  Country: NZ (occurrence: NZ)
  Receive Date: 20160715
  Receipt Date: 20160715
  Transmission Date: 20161109
  Serious: Yes (Hospitalization)
  Sender: FDA-Public Use
  Company Number: NZ-ACCORD-042361

PATIENT
  Age: 54 Year
  Sex: Female
  Weight: 75 kg

DRUGS (2)
  1. AMLODIPINE [Suspect]
     Active Substance: AMLODIPINE BESYLATE
     Dosage: 20 TIMES DAILY DOSE AT 18:00 THE PREVIOUS EVENING
  2. LOSARTAN. [Suspect]
     Active Substance: LOSARTAN
     Dosage: 27 TIMES MAXIMUM DAILY DOSE AT 18:00 THE PREVIOUS EVENING

REACTIONS (5)
  - Hypotension [Recovered/Resolved]
  - Intentional overdose [Unknown]
  - Acute kidney injury [Recovered/Resolved]
  - Metabolic acidosis [Unknown]
  - Respiratory failure [Unknown]
